FAERS Safety Report 23328188 (Version 1)
Quarter: 2023Q4

REPORT INFORMATION
  Report Type: Other
  Country: GB (occurrence: GB)
  Receive Date: 20231221
  Receipt Date: 20231221
  Transmission Date: 20240110
  Serious: Yes (Hospitalization)
  Sender: FDA-Public Use
  Company Number: None

PATIENT

DRUGS (5)
  1. SODIUM PHENYLBUTYRATE [Suspect]
     Active Substance: SODIUM PHENYLBUTYRATE
     Indication: Amyotrophic lateral sclerosis
     Dosage: 2 SACHET DAILY,
     Route: 048
     Dates: start: 20230914, end: 20231122
  2. URSODOXICOLTAURINE [Suspect]
     Active Substance: URSODOXICOLTAURINE
     Indication: Amyotrophic lateral sclerosis
     Route: 048
     Dates: start: 20230914, end: 20231122
  3. SOLPADEINE [Concomitant]
     Indication: Product used for unknown indication
  4. RILUZOLE [Concomitant]
     Active Substance: RILUZOLE
     Indication: Amyotrophic lateral sclerosis
     Dates: start: 20220115
  5. IBUPROFEN [Concomitant]
     Active Substance: IBUPROFEN
     Indication: Amyotrophic lateral sclerosis
     Dates: start: 202201

REACTIONS (1)
  - Diarrhoea [Recovered/Resolved]

NARRATIVE: CASE EVENT DATE: 20230914
